FAERS Safety Report 7677886-0 (Version None)
Quarter: 2011Q3

REPORT INFORMATION
  Report Type: 
  Country: None (occurrence: None)
  Receive Date: 20110811
  Receipt Date: 20110809
  Transmission Date: 20111222
  Serious: Yes (Disabling)
  Sender: FDA-Public Use
  Company Number: US-MERCK-1107USA02472

PATIENT
  Age: 28 Year
  Sex: Female
  Weight: 74 kg

DRUGS (7)
  1. QVAR 40 [Concomitant]
     Indication: ASTHMA
     Route: 055
  2. VITAMIN D (UNSPECIFIED) [Concomitant]
     Route: 048
  3. YAZ [Concomitant]
     Indication: CONTRACEPTION
     Route: 048
  4. SINGULAIR [Suspect]
     Indication: ASTHMA
     Route: 048
     Dates: start: 20110607
  5. SINGULAIR [Suspect]
     Indication: HYPERSENSITIVITY
     Route: 048
     Dates: start: 20110607
  6. ZYRTEC [Concomitant]
     Indication: HYPERSENSITIVITY
     Route: 048
  7. ALBUTEROL [Concomitant]
     Indication: ASTHMA
     Route: 055

REACTIONS (6)
  - DEPRESSED MOOD [None]
  - PARANOIA [None]
  - MOOD ALTERED [None]
  - ANXIETY [None]
  - CRYING [None]
  - SUICIDAL IDEATION [None]
